FAERS Safety Report 19907952 (Version 2)
Quarter: 2021Q4

REPORT INFORMATION
  Report Type: Spontaneous
  Country: IT (occurrence: IT)
  Receive Date: 20211001
  Receipt Date: 20211215
  Transmission Date: 20220303
  Serious: Yes (Death, Other)
  Sender: FDA-Public Use
  Company Number: IT-AMGEN-ITASP2021150032

PATIENT

DRUGS (4)
  1. XGEVA [Suspect]
     Active Substance: DENOSUMAB
     Indication: Metastases to bone
     Dosage: UNK
     Route: 065
  2. NIVOLUMAB [Concomitant]
     Active Substance: NIVOLUMAB
     Indication: Metastases to bone
  3. PEMBROLIZUMAB [Concomitant]
     Active Substance: PEMBROLIZUMAB
     Indication: Metastases to bone
  4. ATEZOLIZUMAB [Concomitant]
     Active Substance: ATEZOLIZUMAB
     Indication: Metastases to bone

REACTIONS (24)
  - Death [Fatal]
  - Osteonecrosis of jaw [Unknown]
  - Sepsis [Unknown]
  - Skin toxicity [Unknown]
  - Neuropathy peripheral [Unknown]
  - Hypothyroidism [Unknown]
  - Neutropenia [Unknown]
  - Hypertransaminasaemia [Unknown]
  - Dermatitis [Recovered/Resolved]
  - Asthenia [Unknown]
  - Therapy partial responder [Unknown]
  - Neutrophil/lymphocyte ratio decreased [Unknown]
  - Blood creatinine increased [Unknown]
  - Hyperamylasaemia [Unknown]
  - Pneumonitis [Unknown]
  - Rash [Unknown]
  - Lipase increased [Unknown]
  - Hypocalcaemia [Unknown]
  - Nephropathy toxic [Unknown]
  - Arthralgia [Unknown]
  - Infection [Unknown]
  - Hypophosphataemia [Unknown]
  - Diarrhoea [Unknown]
  - Dyspnoea [Unknown]
